FAERS Safety Report 7533296-8 (Version None)
Quarter: 2011Q2

REPORT INFORMATION
  Report Type: 
  Country: None (occurrence: None)
  Receive Date: 20110608
  Receipt Date: 20040325
  Transmission Date: 20111010
  Serious: Yes (Death, Other)
  Sender: FDA-Public Use
  Company Number: PHHO2003CA12035

PATIENT
  Sex: Female

DRUGS (1)
  1. CLOZAPINE [Suspect]
     Indication: SCHIZOPHRENIA
     Dosage: NOT REPORTED
     Dates: start: 20010105

REACTIONS (3)
  - METASTASES TO CENTRAL NERVOUS SYSTEM [None]
  - HAEMOGLOBIN DECREASED [None]
  - BREAST CANCER METASTATIC [None]
